FAERS Safety Report 7253766-X (Version None)
Quarter: 2011Q1

REPORT INFORMATION
  Report Type: 
  Country: None (occurrence: None)
  Receive Date: 20110129
  Receipt Date: 20100414
  Transmission Date: 20110831
  Serious: Yes (Hospitalization)
  Sender: FDA-Public Use
  Company Number: US-ABBOTT-10P-163-0623793-00

PATIENT
  Sex: Female
  Weight: 84.898 kg

DRUGS (8)
  1. HUMIRA [Suspect]
     Indication: CROHN'S DISEASE
     Dates: start: 20090701, end: 20090801
  2. PRILOSEC [Concomitant]
     Indication: GASTROOESOPHAGEAL REFLUX DISEASE
  3. HUMIRA [Suspect]
     Dates: start: 20090801
  4. SINGULAIR [Concomitant]
     Indication: HYPERSENSITIVITY
  5. IMODIUM [Concomitant]
     Indication: DIARRHOEA
  6. LEXAPRO [Concomitant]
     Indication: DEPRESSION
  7. ZYRTEC [Concomitant]
     Indication: HYPERSENSITIVITY
  8. CALCIUM WITH VITAMIN D [Concomitant]
     Indication: PRODUCT USED FOR UNKNOWN INDICATION

REACTIONS (8)
  - DYSPNOEA [None]
  - CROHN'S DISEASE [None]
  - OEDEMA PERIPHERAL [None]
  - JOINT SWELLING [None]
  - BLOOD GLUCOSE INCREASED [None]
  - PROTEIN TOTAL DECREASED [None]
  - HEADACHE [None]
  - FISTULA [None]
